FAERS Safety Report 6885956-X (Version None)
Quarter: 2010Q3

REPORT INFORMATION
  Report Type: 
  Country: None (occurrence: None)
  Receive Date: 20100729
  Receipt Date: 20080401
  Transmission Date: 20110219
  Serious: No
  Sender: FDA-Public Use
  Company Number: US-PFIZER INC-2008028760

PATIENT
  Sex: Male
  Weight: 72.727 kg

DRUGS (4)
  1. CELEBREX [Suspect]
     Indication: ARTHRITIS
     Dates: start: 20080331
  2. LAMICTAL [Concomitant]
  3. LEXAPRO [Concomitant]
  4. METHYLPHENIDATE HCL [Concomitant]

REACTIONS (1)
  - RASH [None]
